FAERS Safety Report 9803648 (Version 1)
Quarter: 2014Q1

REPORT INFORMATION
  Report Type: Spontaneous
  Country: US (occurrence: US)
  Receive Date: 20140108
  Receipt Date: 20140108
  Transmission Date: 20141002
  Serious: No
  Sender: FDA-Public Use
  Company Number: US-GLAXOSMITHKLINE-A1019266A

PATIENT
  Age: 58 Year
  Sex: Female

DRUGS (2)
  1. LOVAZA [Suspect]
     Indication: BLOOD TRIGLYCERIDES INCREASED
     Dosage: 2CAP TWICE PER DAY
     Route: 048
  2. PROGESTERONE [Concomitant]

REACTIONS (5)
  - Eructation [Not Recovered/Not Resolved]
  - Dysgeusia [Unknown]
  - Flatulence [Unknown]
  - Product odour abnormal [Unknown]
  - Incorrect product storage [Unknown]
